FAERS Safety Report 7981024 (Version 2)
Quarter: 2012Q4

REPORT INFORMATION
  Report Type: 
  Country: CA (occurrence: CA)
  Receive Date: 20110608
  Receipt Date: 20121107
  Transmission Date: 20130627
  Serious: Yes (Other)
  Sender: FDA-Public Use
  Company Number: PHHO2005CA09218

PATIENT
  Sex: Female

DRUGS (5)
  1. SANDOSTATIN LAR [Suspect]
     Dosage: 30 mg, every 4 weeks
     Dates: start: 20020920
  2. IRON [Concomitant]
  3. PEGVISOMANT [Concomitant]
  4. TYLENOL [Concomitant]
  5. SENOKOT [Concomitant]

REACTIONS (17)
  - Benign breast neoplasm [Unknown]
  - Syncope [Unknown]
  - Weight decreased [Unknown]
  - Constipation [Recovered/Resolved]
  - Rectal haemorrhage [Recovered/Resolved]
  - Arthralgia [Unknown]
  - Back pain [Unknown]
  - Burning sensation [Unknown]
  - Hypotension [Unknown]
  - Pain [Unknown]
  - Hypoaesthesia [Unknown]
  - Blood pressure decreased [Unknown]
  - Blood growth hormone increased [Unknown]
  - Diarrhoea [Unknown]
  - Abdominal pain [Unknown]
  - Dizziness [Unknown]
  - Headache [Unknown]
